FAERS Safety Report 24606617 (Version 1)
Quarter: 2024Q4

REPORT INFORMATION
  Report Type: Spontaneous
  Country: FR (occurrence: FR)
  Receive Date: 20241112
  Receipt Date: 20241112
  Transmission Date: 20250115
  Serious: Yes (Hospitalization, Other)
  Sender: B BRAUN
  Company Number: FR-B.Braun Medical Inc.-2164832

PATIENT
  Sex: Male

DRUGS (13)
  1. DEXTROSE [Suspect]
     Active Substance: DEXTROSE MONOHYDRATE
     Indication: Parenteral nutrition
  2. CERNEVIT [Suspect]
     Active Substance: VITAMINS
  3. ZINC [Suspect]
     Active Substance: ZINC
  4. SELENIUM [Suspect]
     Active Substance: SELENIUM
  5. CALCIUM\DEXTROSE [Suspect]
     Active Substance: CALCIUM\DEXTROSE
  6. POTASSIUM CHLORIDE [Suspect]
     Active Substance: POTASSIUM CHLORIDE
  7. VITAMIN K1 [Suspect]
     Active Substance: PHYTONADIONE
  8. AMINO ACIDS, SOURCE UNSPECIFIED [Suspect]
     Active Substance: AMINO ACIDS, SOURCE UNSPECIFIED
  9. SMOFLIPID [Suspect]
     Active Substance: FISH OIL\MEDIUM-CHAIN TRIGLYCERIDES\OLIVE OIL\SOYBEAN OIL
  10. PHOCYTAN [Suspect]
     Active Substance: .ALPHA.-GLUCOSE-1-PHOSPHATE DISODIUM TETRAHYDRATE
  11. SODIUM CHLORIDE [Suspect]
     Active Substance: SODIUM CHLORIDE
  12. MAGNESIUM CHLORIDE [Suspect]
     Active Substance: MAGNESIUM CHLORIDE
  13. .ALPHA.-TOCOPHEROL ACETATE [Suspect]
     Active Substance: .ALPHA.-TOCOPHEROL ACETATE

REACTIONS (1)
  - Sepsis [Unknown]
